FAERS Safety Report 5493454-3 (Version None)
Quarter: 2007Q4

REPORT INFORMATION
  Report Type: 
  Country: None (occurrence: None)
  Receive Date: 20071019
  Receipt Date: 20071016
  Transmission Date: 20080405
  Serious: Yes (Death, Life-Threatening)
  Sender: FDA-Public Use
  Company Number: TCI2006A02074

PATIENT
  Age: 62 Year
  Sex: Male

DRUGS (7)
  1. LANSOPRAZOLE [Suspect]
     Indication: DUODENAL ULCER PERFORATION
     Dosage: 30 MG (30 MG, 1 IN 1 D); NASOGASTRIC TUBE
     Dates: start: 20060503, end: 20060515
  2. PAZUCROSS (PAZUFLOXACIN) (INJECTION) [Suspect]
     Indication: PNEUMONIA
     Dosage: 1000 MG (500 MG, 2 IN 1 D); INTRAVENOUS
     Route: 042
     Dates: start: 20060503, end: 20060509
  3. BIOFERMIN (BIOFERMI) [Concomitant]
  4. TARGOCID [Concomitant]
  5. MAXIPIME [Concomitant]
  6. PRIMEPERAN (METOCLOPRAMIDE) [Concomitant]
  7. GASMOTIN (MOSAPRIDE CITRATE) [Concomitant]

REACTIONS (14)
  - DISEASE RECURRENCE [None]
  - GASTROINTESTINAL HAEMORRHAGE [None]
  - HAEMOGLOBIN DECREASED [None]
  - HYPOPROTEINAEMIA [None]
  - HYPOTENSION [None]
  - MELAENA [None]
  - OESOPHAGEAL STENOSIS [None]
  - PLEURAL EFFUSION [None]
  - PNEUMONIA [None]
  - PYREXIA [None]
  - RASH GENERALISED [None]
  - SEPSIS [None]
  - STEVENS-JOHNSON SYNDROME [None]
  - TOXIC EPIDERMAL NECROLYSIS [None]
